FAERS Safety Report 21142635 (Version 1)
Quarter: 2022Q3

REPORT INFORMATION
  Report Type: Spontaneous
  Country: US (occurrence: US)
  Receive Date: 20220728
  Receipt Date: 20220728
  Transmission Date: 20221026
  Serious: Yes (Hospitalization, Other)
  Sender: FDA-Public Use
  Company Number: None

PATIENT
  Sex: Male

DRUGS (3)
  1. CARBOPLATIN [Suspect]
     Active Substance: CARBOPLATIN
     Indication: Laryngeal squamous cell carcinoma
     Route: 061
  2. CARBOPLATIN [Suspect]
     Active Substance: CARBOPLATIN
     Route: 065
  3. DOCETAXEL [Suspect]
     Active Substance: DOCETAXEL
     Indication: Laryngeal squamous cell carcinoma
     Route: 065

REACTIONS (1)
  - Acute febrile neutrophilic dermatosis [Recovering/Resolving]
